FAERS Safety Report 23752714 (Version 1)
Quarter: 2024Q2

REPORT INFORMATION
  Report Type: Report from Study
  Country: RO (occurrence: RO)
  Receive Date: 20240417
  Receipt Date: 20240417
  Transmission Date: 20240715
  Serious: Yes (Other)
  Sender: FDA-Public Use
  Company Number: RO-ABBVIE-5722714

PATIENT
  Sex: Female

DRUGS (1)
  1. GLECAPREVIR\PIBRENTASVIR [Suspect]
     Active Substance: GLECAPREVIR\PIBRENTASVIR
     Indication: Chronic hepatitis C
     Dosage: 300 MG/120 MG
     Route: 048
     Dates: start: 20231204, end: 202401

REACTIONS (1)
  - Blindness unilateral [Recovered/Resolved]

NARRATIVE: CASE EVENT DATE: 20240101
